FAERS Safety Report 25161170 (Version 2)
Quarter: 2025Q2

REPORT INFORMATION
  Report Type: Spontaneous
  Country: US (occurrence: US)
  Receive Date: 20250404
  Receipt Date: 20250612
  Transmission Date: 20250717
  Serious: Yes (Disabling, Other)
  Sender: NOVARTIS
  Company Number: US-002147023-NVSC2025US052836

PATIENT

DRUGS (1)
  1. KYMRIAH [Suspect]
     Active Substance: TISAGENLECLEUCEL
     Indication: Acute lymphocytic leukaemia
     Route: 042

REACTIONS (1)
  - Encephalopathy [Not Recovered/Not Resolved]

NARRATIVE: CASE EVENT DATE: 20240601
